FAERS Safety Report 8241830-8 (Version None)
Quarter: 2012Q1

REPORT INFORMATION
  Report Type: 
  Country: None (occurrence: None)
  Receive Date: 20120328
  Receipt Date: 20120323
  Transmission Date: 20120608
  Serious: Yes (Life-Threatening, Hospitalization)
  Sender: FDA-Public Use
  Company Number: ES-ASTRAZENECA-2012SE20062

PATIENT
  Age: 47 Year
  Sex: Female

DRUGS (9)
  1. SEROQUEL [Suspect]
     Dosage: 1G
     Route: 048
     Dates: start: 20110907, end: 20110907
  2. ACETAMINOPHEN [Suspect]
     Indication: PAIN
     Dosage: 6.5 G
     Route: 048
     Dates: start: 20110907, end: 20110907
  3. ALCOHOL [Suspect]
     Route: 065
  4. VENLAFAXIEN [Concomitant]
  5. SEROQUEL [Suspect]
     Indication: SUICIDE ATTEMPT
     Route: 048
     Dates: start: 20110401, end: 20110906
  6. SEROQUEL [Suspect]
     Dosage: 1G
     Route: 048
     Dates: start: 20110907, end: 20110907
  7. SEROQUEL [Suspect]
     Indication: DEPRESSION
     Route: 048
     Dates: start: 20110401, end: 20110906
  8. TOPIRAMATE [Suspect]
     Indication: DEPRESSION
     Route: 048
     Dates: start: 20110401, end: 20110907
  9. ALPRAZOLAM [Suspect]
     Indication: SUICIDE ATTEMPT
     Dosage: 20 MG
     Route: 048
     Dates: start: 20110907, end: 20110907

REACTIONS (2)
  - INTENTIONAL OVERDOSE [None]
  - COMA [None]
